FAERS Safety Report 10356640 (Version 1)
Quarter: 2014Q3

REPORT INFORMATION
  Report Type: Spontaneous
  Country: US (occurrence: US)
  Receive Date: 20140801
  Receipt Date: 20140801
  Transmission Date: 20150326
  Serious: Yes (Other)
  Sender: FDA-Public Use
  Company Number: US-MERCK-1407USA013560

PATIENT
  Age: 27 Year
  Sex: Male

DRUGS (3)
  1. DEXAMETHASONE. [Suspect]
     Active Substance: DEXAMETHASONE
     Dosage: 4 MG, EVERY 6 HOURS FOR THE NEXT 19 DAYS
     Route: 042
  2. DEXAMETHASONE. [Suspect]
     Active Substance: DEXAMETHASONE
     Dosage: 25 MG,EVERY 6 HOURS FOR THE FOLLOWING 4 DAYS
     Route: 042
  3. DEXAMETHASONE. [Suspect]
     Active Substance: DEXAMETHASONE
     Indication: SPINAL CORD INJURY
     Dosage: 10 MG, EVERY 6 HOURS FOR 3 DAYS
     Route: 042
     Dates: start: 1985

REACTIONS (2)
  - Musculoskeletal pain [Unknown]
  - Osteonecrosis [Unknown]

NARRATIVE: CASE EVENT DATE: 1988
